FAERS Safety Report 12088320 (Version 2)
Quarter: 2016Q2

REPORT INFORMATION
  Report Type: Report from Study
  Country: MX (occurrence: MX)
  Receive Date: 20160218
  Receipt Date: 20160418
  Transmission Date: 20160815
  Serious: Yes (Death)
  Sender: FDA-Public Use
  Company Number: MX-ORION CORPORATION ORION PHARMA-ENTC2016-0054

PATIENT
  Age: 82 Year
  Sex: Male

DRUGS (3)
  1. STALEVO [Suspect]
     Active Substance: CARBIDOPA\ENTACAPONE\LEVODOPA
     Indication: PARKINSON^S DISEASE
     Dosage: STRENGTH: 200/50/200 MG
     Route: 065
  2. Q-MIND [Concomitant]
     Route: 065
  3. HEMOSIN-K [Concomitant]
     Route: 065

REACTIONS (2)
  - Infarction [Fatal]
  - Off label use [Unknown]

NARRATIVE: CASE EVENT DATE: 20160207
